FAERS Safety Report 7760837-8 (Version None)
Quarter: 2011Q3

REPORT INFORMATION
  Report Type: 
  Country: None (occurrence: None)
  Receive Date: 20110919
  Receipt Date: 20110912
  Transmission Date: 20111222
  Serious: No
  Sender: FDA-Public Use
  Company Number: CA-PFIZER INC-2011205430

PATIENT
  Age: 76 Year
  Sex: Female

DRUGS (7)
  1. RAMIPRIL [Concomitant]
     Indication: HYPERTENSION
     Dosage: 10 MG, UNK
  2. VITAMIN B-12 [Concomitant]
  3. XALATAN [Suspect]
     Indication: GLAUCOMA
     Dosage: 1 GTT IN BOTH EYES AT BEDTIME, 1X/DAY
     Route: 047
  4. TECTA [Concomitant]
     Dosage: 40 MG, UNK
  5. ADVAIR DISKUS 100/50 [Concomitant]
     Indication: ASTHMA
  6. SYNTHROID [Concomitant]
     Dosage: 0.05, UNK
  7. NITRAZEPAM [Concomitant]
     Dosage: 5 MG, UNK

REACTIONS (1)
  - NO ADVERSE EVENT [None]
